FAERS Safety Report 8129677-4 (Version None)
Quarter: 2012Q1

REPORT INFORMATION
  Report Type: 
  Country: None (occurrence: None)
  Receive Date: 20120210
  Receipt Date: 20120208
  Transmission Date: 20120608
  Serious: Yes (Other)
  Sender: FDA-Public Use
  Company Number: GB-SP-2012-01338

PATIENT
  Sex: Male

DRUGS (1)
  1. IMMUCYST [Suspect]
     Indication: PRODUCT USED FOR UNKNOWN INDICATION
     Route: 065
     Dates: end: 20120123

REACTIONS (5)
  - DISSEMINATED TUBERCULOSIS [None]
  - MALAISE [None]
  - CATHETER SITE RELATED REACTION [None]
  - CHEST DISCOMFORT [None]
  - PYREXIA [None]
